FAERS Safety Report 16242128 (Version 3)
Quarter: 2019Q2

REPORT INFORMATION
  Report Type: Spontaneous
  Country: BG (occurrence: BG)
  Receive Date: 20190426
  Receipt Date: 20190527
  Transmission Date: 20190711
  Serious: Yes (Other)
  Sender: FDA-Public Use
  Company Number: BG-009507513-1904BGR010319

PATIENT
  Age: 63 Year
  Sex: Female

DRUGS (5)
  1. DIPROSALIC [Suspect]
     Active Substance: BETAMETHASONE DIPROPIONATE
     Indication: HYPERKERATOSIS
     Dosage: UNK UNK, BIW
     Dates: start: 201904
  2. PYRAMEM [Concomitant]
     Dosage: 1200 MG IN THE MORNING AND 1200 IN THE AFTERNOON
  3. DIPROSALIC [Suspect]
     Active Substance: BETAMETHASONE DIPROPIONATE
     Dosage: UNK UNK, QOD
     Dates: start: 201904, end: 201904
  4. CAVINTON [Concomitant]
     Active Substance: VINPOCETINE
     Dosage: 20 MILLIGRAM, QD (ALSO REPORTED 10 MG, BID)
  5. DIPROSALIC [Suspect]
     Active Substance: BETAMETHASONE DIPROPIONATE
     Dosage: UNK, QD
     Dates: start: 201904, end: 201904

REACTIONS (1)
  - Transient ischaemic attack [Unknown]

NARRATIVE: CASE EVENT DATE: 20190413
